FAERS Safety Report 6174513-9 (Version None)
Quarter: 2009Q2

REPORT INFORMATION
  Report Type: 
  Country: None (occurrence: None)
  Receive Date: 20090430
  Receipt Date: 20080911
  Transmission Date: 20091009
  Serious: No
  Sender: FDA-Public Use
  Company Number: US-ASTRAZENECA-2008UW13550

PATIENT
  Age: 24 Year
  Sex: Male
  Weight: 113.4 kg

DRUGS (1)
  1. NEXIUM [Suspect]
     Indication: ULCER
     Route: 048

REACTIONS (5)
  - ABDOMINAL PAIN [None]
  - FAECES DISCOLOURED [None]
  - GASTRITIS [None]
  - HAEMATEMESIS [None]
  - NAUSEA [None]
